FAERS Safety Report 9901083 (Version 2)
Quarter: 2014Q1

REPORT INFORMATION
  Report Type: Spontaneous
  Country: US (occurrence: US)
  Receive Date: 20140217
  Receipt Date: 20140317
  Transmission Date: 20141002
  Serious: No
  Sender: FDA-Public Use
  Company Number: US-PFIZER INC-2014042618

PATIENT
  Age: 52 Year
  Sex: Male

DRUGS (3)
  1. MEDROL [Suspect]
     Dosage: UNK
  2. SULFADIAZINE SILVER [Suspect]
     Dosage: UNK
  3. AZMACORT [Suspect]
     Dosage: UNK

REACTIONS (1)
  - Drug hypersensitivity [Unknown]
